FAERS Safety Report 25340528 (Version 1)
Quarter: 2025Q2

REPORT INFORMATION
  Report Type: Spontaneous
  Country: US (occurrence: US)
  Receive Date: 20250521
  Receipt Date: 20250521
  Transmission Date: 20250717
  Serious: Yes (Hospitalization)
  Sender: CHIESI
  Company Number: US-MLMSERVICE-20250507-PI501349-00244-1

PATIENT
  Age: 74 Year
  Sex: Male

DRUGS (2)
  1. OCTREOTIDE [Suspect]
     Active Substance: OCTREOTIDE
     Indication: Pancreatic neuroendocrine tumour metastatic
  2. OCTREOTIDE [Suspect]
     Active Substance: OCTREOTIDE
     Indication: Off label use

REACTIONS (4)
  - Biliary colic [Recovered/Resolved]
  - Cholelithiasis [Recovered/Resolved]
  - Cholangitis [Recovered/Resolved]
  - Off label use [Unknown]
